FAERS Safety Report 11443818 (Version 3)
Quarter: 2015Q3

REPORT INFORMATION
  Report Type: Spontaneous
  Country: JP (occurrence: JP)
  Receive Date: 20150901
  Receipt Date: 20150930
  Transmission Date: 20151125
  Serious: Yes (Other)
  Sender: FDA-Public Use
  Company Number: JP-AMGEN-JPNSP2015088833

PATIENT
  Age: 32 Year
  Sex: Female

DRUGS (10)
  1. ENBREL [Suspect]
     Active Substance: ETANERCEPT
     Dosage: 25 MG, WEEKLY
     Route: 058
     Dates: start: 20110425
  2. ALSIODOL [Concomitant]
     Active Substance: ALFACALCIDOL
     Indication: PROPHYLAXIS
     Dosage: 1 MUG, 1X/DAY
     Route: 048
     Dates: start: 20110517
  3. ALLEGRA [Concomitant]
     Active Substance: FEXOFENADINE HYDROCHLORIDE
     Indication: ATOPY
     Dosage: 60 MG, 2X/DAY
     Route: 048
     Dates: start: 20110517, end: 20141007
  4. PREDNISOLONE. [Concomitant]
     Active Substance: PREDNISOLONE
     Dosage: 5 MG/DAY
  5. BUCILLATE [Concomitant]
     Indication: RHEUMATOID ARTHRITIS
     Dosage: 100 MG, 2X/DAY
     Route: 048
     Dates: start: 20110517
  6. ENBREL [Suspect]
     Active Substance: ETANERCEPT
     Indication: RHEUMATOID ARTHRITIS
     Dosage: 25 MG, WEEKLY
     Route: 058
     Dates: start: 20100425
  7. PREDNISOLONE. [Concomitant]
     Active Substance: PREDNISOLONE
     Indication: RHEUMATOID ARTHRITIS
     Dosage: 4 MG, 1X/DAY
     Dates: start: 20110517
  8. PROGRAF [Concomitant]
     Active Substance: TACROLIMUS\TACROLIMUS ANHYDROUS
     Indication: RHEUMATOID ARTHRITIS
     Dosage: 3 MG, 1X/DAY
     Route: 048
     Dates: start: 20110517, end: 20141007
  9. BUCILLATE [Concomitant]
     Dosage: 200 MG/DAY
  10. FAMOTIDINE. [Concomitant]
     Active Substance: FAMOTIDINE
     Indication: PROPHYLAXIS
     Dosage: 10 MG, 2X/DAY
     Route: 048
     Dates: start: 20110517

REACTIONS (8)
  - Dermatitis atopic [Recovering/Resolving]
  - Rash [Unknown]
  - Erythema [Unknown]
  - Condition aggravated [Recovering/Resolving]
  - Skin infection [Unknown]
  - Streptococcal infection [Recovering/Resolving]
  - Acute febrile neutrophilic dermatosis [Recovered/Resolved]
  - Rash pustular [Unknown]

NARRATIVE: CASE EVENT DATE: 20150722
